FAERS Safety Report 7762124-0 (Version None)
Quarter: 2011Q3

REPORT INFORMATION
  Report Type: 
  Country: None (occurrence: None)
  Receive Date: 20110919
  Receipt Date: 20110919
  Transmission Date: 20111222
  Serious: Yes (Hospitalization)
  Sender: FDA-Public Use
  Company Number: None

PATIENT
  Sex: Female
  Weight: 61 kg

DRUGS (3)
  1. CYCLOPHOSPHAMIDE [Suspect]
     Dosage: 1038 MG
     Dates: end: 20110830
  2. DOXORUBICIN HYDROCHLORIDE [Suspect]
     Dosage: 104 MG
     Dates: end: 20110830
  3. NEULASTA [Suspect]
     Dosage: 6 MG
     Dates: end: 20110831

REACTIONS (1)
  - FEBRILE NEUTROPENIA [None]
